FAERS Safety Report 12214365 (Version 1)
Quarter: 2016Q1

REPORT INFORMATION
  Report Type: Spontaneous
  Country: US (occurrence: None)
  Receive Date: 20160325
  Receipt Date: 20160325
  Transmission Date: 20160526
  Serious: No
  Sender: FDA-Public Use
  Company Number: None

PATIENT
  Age: 54 Year
  Sex: Male

DRUGS (1)
  1. HUMIRA [Suspect]
     Active Substance: ADALIMUMAB
     Indication: PROSTATIC SPECIFIC ANTIGEN
     Dosage: 40 MG QOW SQ??FROM 1 YEAR AGO TO ON HOLD
     Route: 058

REACTIONS (1)
  - Herpes zoster [None]
